FAERS Safety Report 14018304 (Version 1)
Quarter: 2017Q3

REPORT INFORMATION
  Report Type: Spontaneous
  Country: US (occurrence: US)
  Receive Date: 20170927
  Receipt Date: 20170927
  Transmission Date: 20171128
  Serious: Yes (Disabling)
  Sender: FDA-Public Use
  Company Number: None

PATIENT
  Age: 46 Year
  Sex: Male
  Weight: 87.75 kg

DRUGS (7)
  1. MAXIMUM STRENGTH FAMOTIDINE TABLES, USP, 20 MG [Suspect]
     Active Substance: FAMOTIDINE
     Indication: DYSPEPSIA
     Dosage: ?          QUANTITY:25 TABLET(S);?
     Route: 048
     Dates: start: 20170918, end: 20170918
  2. SINGULAIR INHALER [Concomitant]
  3. VITAMIN E [Concomitant]
     Active Substance: .ALPHA.-TOCOPHEROL
  4. CALCIUM [Concomitant]
     Active Substance: CALCIUM
  5. FISH OIL [Concomitant]
     Active Substance: FISH OIL
  6. PROVENTIL HFA [Concomitant]
     Active Substance: ALBUTEROL SULFATE
  7. ONE A DAY MULTI FOR WOMEN [Concomitant]
     Active Substance: MINERALS\VITAMINS

REACTIONS (5)
  - Product lot number issue [None]
  - Drug ineffective [None]
  - Headache [None]
  - Dyspepsia [None]
  - Malaise [None]

NARRATIVE: CASE EVENT DATE: 20170918
